FAERS Safety Report 23433646 (Version 1)
Quarter: 2024Q1

REPORT INFORMATION
  Report Type: Spontaneous
  Country: DE (occurrence: DE)
  Receive Date: 20240123
  Receipt Date: 20240123
  Transmission Date: 20240410
  Serious: Yes (Other)
  Sender: FDA-Public Use
  Company Number: DE-TEVA-VS-3134482

PATIENT

DRUGS (1)
  1. LEVOFLOXACIN [Suspect]
     Active Substance: LEVOFLOXACIN
     Route: 065
     Dates: start: 2017

REACTIONS (10)
  - Gene mutation [Unknown]
  - Facial pain [Unknown]
  - Headache [Unknown]
  - Neck pain [Unknown]
  - Chronic fatigue syndrome [Unknown]
  - Abdominal pain [Unknown]
  - Nausea [Unknown]
  - Myalgia [Unknown]
  - Intestinal barrier dysfunction [Unknown]
  - Food intolerance [Unknown]
